FAERS Safety Report 15848090 (Version 1)
Quarter: 2019Q1

REPORT INFORMATION
  Report Type: Spontaneous
  Country: NO (occurrence: NO)
  Receive Date: 20190121
  Receipt Date: 20190121
  Transmission Date: 20190417
  Serious: Yes (Life-Threatening)
  Sender: FDA-Public Use
  Company Number: NO-ASTRAZENECA-2019SE08516

PATIENT
  Age: 58 Year
  Sex: Female
  Weight: 75 kg

DRUGS (7)
  1. SYMBICORT [Suspect]
     Active Substance: BUDESONIDE\FORMOTEROL FUMARATE DIHYDRATE
     Indication: ASTHMA
     Dosage: 160/4.5 MICROGRAM/INHALATION, EVERY SIX HOURS UNKNOWN
     Route: 055
     Dates: start: 20180907, end: 20181228
  2. ARCOXIA [Concomitant]
     Active Substance: ETORICOXIB
     Dates: start: 20150201
  3. SYMBICORT [Suspect]
     Active Substance: BUDESONIDE\FORMOTEROL FUMARATE DIHYDRATE
     Indication: EMPHYSEMA
     Dosage: UNKNOWN DOSE AND FREQUENCY UNKNOWN
     Route: 055
     Dates: start: 20180907, end: 20181228
  4. SYMBICORT [Suspect]
     Active Substance: BUDESONIDE\FORMOTEROL FUMARATE DIHYDRATE
     Indication: CHRONIC OBSTRUCTIVE PULMONARY DISEASE
     Dosage: UNKNOWN DOSE AND FREQUENCY UNKNOWN
     Route: 055
     Dates: start: 20180907, end: 20181228
  5. SYMBICORT [Suspect]
     Active Substance: BUDESONIDE\FORMOTEROL FUMARATE DIHYDRATE
     Indication: CHRONIC OBSTRUCTIVE PULMONARY DISEASE
     Dosage: 160/4.5 MICROGRAM/INHALATION, EVERY SIX HOURS UNKNOWN
     Route: 055
     Dates: start: 20180907, end: 20181228
  6. SYMBICORT [Suspect]
     Active Substance: BUDESONIDE\FORMOTEROL FUMARATE DIHYDRATE
     Indication: ASTHMA
     Dosage: UNKNOWN DOSE AND FREQUENCY UNKNOWN
     Route: 055
     Dates: start: 20180907, end: 20181228
  7. SYMBICORT [Suspect]
     Active Substance: BUDESONIDE\FORMOTEROL FUMARATE DIHYDRATE
     Indication: EMPHYSEMA
     Dosage: 160/4.5 MICROGRAM/INHALATION, EVERY SIX HOURS UNKNOWN
     Route: 055
     Dates: start: 20180907, end: 20181228

REACTIONS (3)
  - Fungal skin infection [Recovering/Resolving]
  - Fungal infection [Recovering/Resolving]
  - Rash [Recovering/Resolving]

NARRATIVE: CASE EVENT DATE: 20180907
